FAERS Safety Report 24792233 (Version 1)
Quarter: 2024Q4

REPORT INFORMATION
  Report Type: Spontaneous
  Country: CA (occurrence: CA)
  Receive Date: 20241231
  Receipt Date: 20241231
  Transmission Date: 20250115
  Serious: Yes (Death, Other)
  Sender: BRISTOL-MYERS SQUIBB COMPANY
  Company Number: CA-BRISTOL-MYERS SQUIBB COMPANY-2024-201142

PATIENT
  Age: 40 Year
  Sex: Female
  Weight: 73 kg

DRUGS (182)
  1. ORENCIA [Suspect]
     Active Substance: ABATACEPT
     Indication: Rheumatoid arthritis
     Route: 042
  2. ORENCIA [Suspect]
     Active Substance: ABATACEPT
  3. ORENCIA [Suspect]
     Active Substance: ABATACEPT
  4. ORENCIA [Suspect]
     Active Substance: ABATACEPT
     Route: 058
  5. ORENCIA [Suspect]
     Active Substance: ABATACEPT
  6. ORENCIA [Suspect]
     Active Substance: ABATACEPT
     Route: 042
  7. ORENCIA [Suspect]
     Active Substance: ABATACEPT
     Route: 042
  8. XELJANZ [Concomitant]
     Active Substance: TOFACITINIB CITRATE
     Indication: Rheumatoid arthritis
     Dosage: 5 MILLIGRAM, BID
  9. XELJANZ [Concomitant]
     Active Substance: TOFACITINIB CITRATE
     Dosage: 5 MILLIGRAM, BID
     Route: 048
  10. XELJANZ [Concomitant]
     Active Substance: TOFACITINIB CITRATE
     Dosage: 5 MILLIGRAM, BID
     Route: 048
  11. XELJANZ [Concomitant]
     Active Substance: TOFACITINIB CITRATE
     Dosage: 5 MILLIGRAM, BID
     Route: 048
  12. XELJANZ [Concomitant]
     Active Substance: TOFACITINIB CITRATE
  13. XELJANZ [Concomitant]
     Active Substance: TOFACITINIB CITRATE
  14. RITUXIMAB [Concomitant]
     Active Substance: RITUXIMAB
     Indication: Rheumatoid arthritis
     Dosage: 1000 MILLIGRAM, BID
     Route: 042
  15. RITUXIMAB [Concomitant]
     Active Substance: RITUXIMAB
     Route: 042
  16. RITUXIMAB [Concomitant]
     Active Substance: RITUXIMAB
     Route: 041
  17. RITUXIMAB [Concomitant]
     Active Substance: RITUXIMAB
     Route: 041
  18. RITUXIMAB [Concomitant]
     Active Substance: RITUXIMAB
     Route: 041
  19. RITUXIMAB [Concomitant]
     Active Substance: RITUXIMAB
     Route: 042
  20. RITUXIMAB [Concomitant]
     Active Substance: RITUXIMAB
  21. RITUXIMAB [Concomitant]
     Active Substance: RITUXIMAB
     Route: 058
  22. RITUXIMAB [Concomitant]
     Active Substance: RITUXIMAB
  23. RITUXIMAB [Concomitant]
     Active Substance: RITUXIMAB
     Route: 041
  24. RITUXIMAB [Concomitant]
     Active Substance: RITUXIMAB
     Route: 016
  25. RITUXIMAB [Concomitant]
     Active Substance: RITUXIMAB
     Route: 043
  26. RITUXIMAB [Concomitant]
     Active Substance: RITUXIMAB
     Route: 042
  27. RITUXIMAB [Concomitant]
     Active Substance: RITUXIMAB
     Route: 041
  28. RITUXIMAB [Concomitant]
     Active Substance: RITUXIMAB
     Route: 042
  29. RITUXIMAB [Concomitant]
     Active Substance: RITUXIMAB
  30. RITUXIMAB [Concomitant]
     Active Substance: RITUXIMAB
  31. RITUXIMAB [Concomitant]
     Active Substance: RITUXIMAB
     Route: 042
  32. RITUXIMAB [Concomitant]
     Active Substance: RITUXIMAB
     Route: 042
  33. RITUXIMAB [Concomitant]
     Active Substance: RITUXIMAB
  34. TOFACITINIB CITRATE [Concomitant]
     Active Substance: TOFACITINIB CITRATE
     Indication: Rheumatoid arthritis
     Route: 048
  35. TOFACITINIB CITRATE [Concomitant]
     Active Substance: TOFACITINIB CITRATE
  36. TOFACITINIB CITRATE [Concomitant]
     Active Substance: TOFACITINIB CITRATE
  37. TOFACITINIB CITRATE [Concomitant]
     Active Substance: TOFACITINIB CITRATE
     Route: 048
  38. SULFASALAZINE [Concomitant]
     Active Substance: SULFASALAZINE
     Indication: Rheumatoid arthritis
     Dosage: UNK
     Route: 048
  39. SULFASALAZINE [Concomitant]
     Active Substance: SULFASALAZINE
     Route: 058
  40. SULFASALAZINE [Concomitant]
     Active Substance: SULFASALAZINE
  41. SULFASALAZINE [Concomitant]
     Active Substance: SULFASALAZINE
  42. SULFASALAZINE [Concomitant]
     Active Substance: SULFASALAZINE
  43. SULFASALAZINE [Concomitant]
     Active Substance: SULFASALAZINE
     Route: 048
  44. SULFASALAZINE [Concomitant]
     Active Substance: SULFASALAZINE
     Route: 048
  45. SULFASALAZINE [Concomitant]
     Active Substance: SULFASALAZINE
     Route: 048
  46. SULFASALAZINE [Concomitant]
     Active Substance: SULFASALAZINE
     Route: 048
  47. SULFASALAZINE [Concomitant]
     Active Substance: SULFASALAZINE
     Route: 048
  48. SULFASALAZINE [Concomitant]
     Active Substance: SULFASALAZINE
  49. SIMPONI [Concomitant]
     Active Substance: GOLIMUMAB
     Indication: Rheumatoid arthritis
  50. SIMPONI [Concomitant]
     Active Substance: GOLIMUMAB
     Route: 058
  51. SIMPONI [Concomitant]
     Active Substance: GOLIMUMAB
     Route: 058
  52. SIMPONI [Concomitant]
     Active Substance: GOLIMUMAB
  53. REMICADE [Concomitant]
     Active Substance: INFLIXIMAB
     Indication: Rheumatoid arthritis
     Dosage: 500 MILLIGRAM
     Route: 042
  54. REMICADE [Concomitant]
     Active Substance: INFLIXIMAB
     Route: 042
  55. REMICADE [Concomitant]
     Active Substance: INFLIXIMAB
  56. REMICADE [Concomitant]
     Active Substance: INFLIXIMAB
     Route: 058
  57. REMICADE [Concomitant]
     Active Substance: INFLIXIMAB
  58. PREDNISONE [Concomitant]
     Active Substance: PREDNISONE
     Indication: Product used for unknown indication
     Dosage: 20 MILLIGRAM EVERY 24 HOURS
     Route: 048
  59. PREDNISONE [Concomitant]
     Active Substance: PREDNISONE
     Dosage: 50 MILLIGRAM EVERY 24 HOURS
     Route: 048
  60. PREDNISONE [Concomitant]
     Active Substance: PREDNISONE
  61. PREDNISONE [Concomitant]
     Active Substance: PREDNISONE
  62. PREDNISONE [Concomitant]
     Active Substance: PREDNISONE
     Route: 048
  63. PREDNISONE [Concomitant]
     Active Substance: PREDNISONE
  64. METHOTREXATE [Concomitant]
     Active Substance: METHOTREXATE
     Indication: Rheumatoid arthritis
     Dosage: UNK
     Route: 048
  65. METHOTREXATE [Concomitant]
     Active Substance: METHOTREXATE
     Dosage: UNK
     Route: 058
  66. METHOTREXATE [Concomitant]
     Active Substance: METHOTREXATE
     Dosage: UNK
     Route: 058
  67. METHOTREXATE [Concomitant]
     Active Substance: METHOTREXATE
     Dosage: UNK
     Route: 048
  68. METHOTREXATE [Concomitant]
     Active Substance: METHOTREXATE
     Dosage: UNK
     Route: 048
  69. METHOTREXATE [Concomitant]
     Active Substance: METHOTREXATE
  70. METHOTREXATE [Concomitant]
     Active Substance: METHOTREXATE
     Route: 048
  71. METHOTREXATE [Concomitant]
     Active Substance: METHOTREXATE
     Route: 013
  72. METHOTREXATE [Concomitant]
     Active Substance: METHOTREXATE
  73. METHOTREXATE [Concomitant]
     Active Substance: METHOTREXATE
     Route: 048
  74. METHOTREXATE [Concomitant]
     Active Substance: METHOTREXATE
  75. METHOTREXATE [Concomitant]
     Active Substance: METHOTREXATE
     Route: 048
  76. METHOTREXATE [Concomitant]
     Active Substance: METHOTREXATE
     Route: 048
  77. METHOTREXATE [Concomitant]
     Active Substance: METHOTREXATE
     Route: 058
  78. METHOTREXATE [Concomitant]
     Active Substance: METHOTREXATE
     Route: 058
  79. METHOTREXATE [Concomitant]
     Active Substance: METHOTREXATE
     Route: 048
  80. METHOTREXATE [Concomitant]
     Active Substance: METHOTREXATE
     Route: 058
  81. METHOTREXATE [Concomitant]
     Active Substance: METHOTREXATE
     Route: 016
  82. METHOTREXATE [Concomitant]
     Active Substance: METHOTREXATE
     Route: 013
  83. METHOTREXATE [Concomitant]
     Active Substance: METHOTREXATE
  84. METHOTREXATE [Concomitant]
     Active Substance: METHOTREXATE
     Route: 048
  85. METHOTREXATE [Concomitant]
     Active Substance: METHOTREXATE
  86. METHOTREXATE [Concomitant]
     Active Substance: METHOTREXATE
     Route: 048
  87. LEFLUNOMIDE [Concomitant]
     Active Substance: LEFLUNOMIDE
     Indication: Rheumatoid arthritis
     Dosage: UNK
  88. LEFLUNOMIDE [Concomitant]
     Active Substance: LEFLUNOMIDE
     Dosage: UNK
     Route: 048
  89. LEFLUNOMIDE [Concomitant]
     Active Substance: LEFLUNOMIDE
     Dosage: UNK
  90. LEFLUNOMIDE [Concomitant]
     Active Substance: LEFLUNOMIDE
     Route: 048
  91. LEFLUNOMIDE [Concomitant]
     Active Substance: LEFLUNOMIDE
  92. HYDROXYCHLOROQUINE SULFATE [Concomitant]
     Active Substance: HYDROXYCHLOROQUINE SULFATE
     Indication: Rheumatoid arthritis
     Route: 048
  93. HYDROXYCHLOROQUINE SULFATE [Concomitant]
     Active Substance: HYDROXYCHLOROQUINE SULFATE
  94. HUMIRA [Concomitant]
     Active Substance: ADALIMUMAB
     Indication: Rheumatoid arthritis
     Dosage: 40 MILLIGRAM
     Route: 058
  95. HUMIRA [Concomitant]
     Active Substance: ADALIMUMAB
     Route: 058
  96. HUMIRA [Concomitant]
     Active Substance: ADALIMUMAB
     Route: 058
  97. HUMIRA [Concomitant]
     Active Substance: ADALIMUMAB
     Route: 058
  98. HUMIRA [Concomitant]
     Active Substance: ADALIMUMAB
  99. GOLD [Concomitant]
     Active Substance: GOLD
     Indication: Product used for unknown indication
     Dosage: UNK
  100. CIMZIA [Concomitant]
     Active Substance: CERTOLIZUMAB PEGOL
     Indication: Rheumatoid arthritis
     Dosage: UNK
     Route: 058
  101. ENBREL [Concomitant]
     Active Substance: ETANERCEPT
     Indication: Rheumatoid arthritis
     Dosage: 50 MILLIGRAM
     Route: 058
  102. ENBREL [Concomitant]
     Active Substance: ETANERCEPT
     Route: 058
  103. ENBREL [Concomitant]
     Active Substance: ETANERCEPT
  104. ENBREL [Concomitant]
     Active Substance: ETANERCEPT
     Route: 042
  105. ENBREL [Concomitant]
     Active Substance: ETANERCEPT
     Route: 058
  106. ENBREL [Concomitant]
     Active Substance: ETANERCEPT
     Route: 058
  107. ENBREL [Concomitant]
     Active Substance: ETANERCEPT
  108. PREDNISONE [Concomitant]
     Active Substance: PREDNISONE
     Indication: Rheumatoid arthritis
     Route: 048
  109. PREDNISONE [Concomitant]
     Active Substance: PREDNISONE
     Route: 048
  110. ACTEMRA [Concomitant]
     Active Substance: TOCILIZUMAB
     Indication: Rheumatoid arthritis
     Dosage: 8 MILLIGRAM/KILOGRAM, 2 YEARS
     Route: 042
  111. ACTEMRA [Concomitant]
     Active Substance: TOCILIZUMAB
  112. ACTEMRA [Concomitant]
     Active Substance: TOCILIZUMAB
  113. ACTEMRA [Concomitant]
     Active Substance: TOCILIZUMAB
     Route: 058
  114. ACTEMRA [Concomitant]
     Active Substance: TOCILIZUMAB
  115. ACTEMRA [Concomitant]
     Active Substance: TOCILIZUMAB
     Route: 058
  116. ACTEMRA [Concomitant]
     Active Substance: TOCILIZUMAB
     Route: 042
  117. ACTEMRA [Concomitant]
     Active Substance: TOCILIZUMAB
     Route: 042
  118. ACTEMRA [Concomitant]
     Active Substance: TOCILIZUMAB
     Route: 042
  119. ACTEMRA [Concomitant]
     Active Substance: TOCILIZUMAB
  120. ACTEMRA [Concomitant]
     Active Substance: TOCILIZUMAB
  121. ACTEMRA [Concomitant]
     Active Substance: TOCILIZUMAB
     Route: 058
  122. ACTEMRA [Concomitant]
     Active Substance: TOCILIZUMAB
     Route: 061
  123. ACTEMRA [Concomitant]
     Active Substance: TOCILIZUMAB
  124. ACTEMRA [Concomitant]
     Active Substance: TOCILIZUMAB
     Route: 058
  125. ACETAMINOPHEN [Concomitant]
     Active Substance: ACETAMINOPHEN
     Indication: Product used for unknown indication
  126. ALENDRONATE SODIUM [Concomitant]
     Active Substance: ALENDRONATE SODIUM
     Indication: Product used for unknown indication
  127. ALENDRONATE SODIUM [Concomitant]
     Active Substance: ALENDRONATE SODIUM
     Route: 048
  128. ALENDRONATE SODIUM [Concomitant]
     Active Substance: ALENDRONATE SODIUM
     Route: 005
  129. ALENDRONATE SODIUM [Concomitant]
     Active Substance: ALENDRONATE SODIUM
     Route: 016
  130. LEFLUNOMIDE [Concomitant]
     Active Substance: LEFLUNOMIDE
     Indication: Rheumatoid arthritis
  131. LEFLUNOMIDE [Concomitant]
     Active Substance: LEFLUNOMIDE
     Route: 048
  132. LEFLUNOMIDE [Concomitant]
     Active Substance: LEFLUNOMIDE
  133. TRAMADOL HYDROCHLORIDE [Concomitant]
     Active Substance: TRAMADOL HYDROCHLORIDE
     Indication: Product used for unknown indication
  134. APREMILAST [Concomitant]
     Active Substance: APREMILAST
     Indication: Product used for unknown indication
  135. AZATHIOPRINE [Concomitant]
     Active Substance: AZATHIOPRINE
     Indication: Product used for unknown indication
  136. CERTOLIZUMAB PEGOL [Concomitant]
     Active Substance: CERTOLIZUMAB PEGOL
     Indication: Product used for unknown indication
     Route: 058
  137. CETIRIZINE [Concomitant]
     Active Substance: CETIRIZINE HYDROCHLORIDE
     Indication: Product used for unknown indication
  138. CORTISONE ACETATE [Concomitant]
     Active Substance: CORTISONE ACETATE
     Indication: Product used for unknown indication
  139. COSENTYX [Concomitant]
     Active Substance: SECUKINUMAB
     Indication: Product used for unknown indication
  140. COSENTYX [Concomitant]
     Active Substance: SECUKINUMAB
     Route: 005
  141. DESOXIMETASONE [Concomitant]
     Active Substance: DESOXIMETASONE
     Indication: Rheumatoid arthritis
     Route: 058
  142. DESOXIMETASONE [Concomitant]
     Active Substance: DESOXIMETASONE
     Route: 048
  143. DESOXIMETASONE [Concomitant]
     Active Substance: DESOXIMETASONE
  144. ERELZI [Concomitant]
     Active Substance: ETANERCEPT-SZZS
     Indication: Rheumatoid arthritis
  145. ERELZI [Concomitant]
     Active Substance: ETANERCEPT-SZZS
     Route: 058
  146. FLUMETHASONE PIVALATE [Concomitant]
     Active Substance: FLUMETHASONE PIVALATE
     Indication: Product used for unknown indication
  147. FOLIC ACID [Concomitant]
     Active Substance: FOLIC ACID
     Indication: Product used for unknown indication
  148. FOLIC ACID [Concomitant]
     Active Substance: FOLIC ACID
     Route: 048
  149. FOLIC ACID [Concomitant]
     Active Substance: FOLIC ACID
     Route: 048
  150. FOLIC ACID [Concomitant]
     Active Substance: FOLIC ACID
     Route: 048
  151. FOLIC ACID [Concomitant]
     Active Substance: FOLIC ACID
  152. FOLIC ACID [Concomitant]
     Active Substance: FOLIC ACID
     Route: 048
  153. FOLIC ACID [Concomitant]
     Active Substance: FOLIC ACID
     Route: 048
  154. GOLD SODIUM THIOMALATE [Concomitant]
     Active Substance: GOLD SODIUM THIOMALATE
     Indication: Product used for unknown indication
  155. HYDROXYCHLOROQUINE [Concomitant]
     Active Substance: HYDROXYCHLOROQUINE
     Indication: Rheumatoid arthritis
  156. HYDROXYCHLOROQUINE [Concomitant]
     Active Substance: HYDROXYCHLOROQUINE
  157. HYDROXYCHLOROQUINE [Concomitant]
     Active Substance: HYDROXYCHLOROQUINE
     Route: 048
  158. HYDROXYCHLOROQUINE [Concomitant]
     Active Substance: HYDROXYCHLOROQUINE
  159. INFLIXIMAB [Concomitant]
     Active Substance: INFLIXIMAB
     Indication: Rheumatoid arthritis
     Route: 042
  160. KEVZARA [Concomitant]
     Active Substance: SARILUMAB
     Indication: Product used for unknown indication
  161. METHYLPREDNISOLONE [Concomitant]
     Active Substance: METHYLPREDNISOLONE
     Indication: Product used for unknown indication
  162. METHYLPREDNISOLONE [Concomitant]
     Active Substance: METHYLPREDNISOLONE
  163. MINOCYCLINE HYDROCHLORIDE [Concomitant]
     Active Substance: MINOCYCLINE HYDROCHLORIDE
     Indication: Rheumatoid arthritis
  164. MYOCHRYSINE [Concomitant]
     Active Substance: GOLD SODIUM THIOMALATE
     Indication: Rheumatoid arthritis
     Route: 030
  165. NAPROXEN [Concomitant]
     Active Substance: NAPROXEN
     Indication: Product used for unknown indication
  166. PHTHALYLSULFATHIAZOLE [Concomitant]
     Active Substance: PHTHALYLSULFATHIAZOLE
     Indication: Product used for unknown indication
     Route: 058
  167. PHTHALYLSULFATHIAZOLE [Concomitant]
     Active Substance: PHTHALYLSULFATHIAZOLE
  168. PSEUDOEPHEDRINE HYDROCHLORIDE [Concomitant]
     Active Substance: PSEUDOEPHEDRINE HYDROCHLORIDE
     Indication: Product used for unknown indication
  169. SALAZOPYRINE [Concomitant]
     Active Substance: SULFASALAZINE
     Indication: Rheumatoid arthritis
  170. SIRUKUMAB [Concomitant]
     Active Substance: SIRUKUMAB
     Indication: Product used for unknown indication
  171. GOLD SODIUM THIOMALATE [Concomitant]
     Active Substance: GOLD SODIUM THIOMALATE
     Indication: Product used for unknown indication
     Route: 048
  172. STELARA [Concomitant]
     Active Substance: USTEKINUMAB
     Indication: Rheumatoid arthritis
     Route: 058
  173. TOCILIZUMAB [Concomitant]
     Active Substance: TOCILIZUMAB
     Indication: Product used for unknown indication
     Route: 058
  174. TOCILIZUMAB [Concomitant]
     Active Substance: TOCILIZUMAB
     Route: 042
  175. TOCILIZUMAB [Concomitant]
     Active Substance: TOCILIZUMAB
  176. DICLOFENAC POTASSIUM [Concomitant]
     Active Substance: DICLOFENAC POTASSIUM
     Indication: Product used for unknown indication
  177. DICLOFENAC POTASSIUM [Concomitant]
     Active Substance: DICLOFENAC POTASSIUM
  178. BERINERT [Concomitant]
     Active Substance: HUMAN C1-ESTERASE INHIBITOR
     Indication: Product used for unknown indication
  179. CALCIUM CARBONATE [Concomitant]
     Active Substance: CALCIUM CARBONATE
     Indication: Product used for unknown indication
  180. CORTISONE (HYDROCORTISONE) [Concomitant]
     Active Substance: HYDROCORTISONE
     Indication: Product used for unknown indication
  181. DEXTROMETHORPHAN HYDROBROMIDE\PSEUDOEPHEDRINE HYDROCHLORIDE\TRIPROLIDI [Concomitant]
     Active Substance: DEXTROMETHORPHAN HYDROBROMIDE\PSEUDOEPHEDRINE HYDROCHLORIDE\TRIPROLIDINE HYDROCHLORIDE
     Indication: Product used for unknown indication
  182. NUCALA [Concomitant]
     Active Substance: MEPOLIZUMAB
     Indication: Product used for unknown indication

REACTIONS (1)
  - Death [Fatal]
